FAERS Safety Report 9761262 (Version 2)
Quarter: 2013Q4

REPORT INFORMATION
  Report Type: Spontaneous
  Country: US (occurrence: US)
  Receive Date: 20131216
  Receipt Date: 20131219
  Transmission Date: 20140711
  Serious: Yes (Other)
  Sender: FDA-Public Use
  Company Number: ALCN2013US006201

PATIENT
  Sex: 0

DRUGS (1)
  1. BSS [Suspect]
     Dosage: UNK
     Route: 031

REACTIONS (1)
  - Toxic anterior segment syndrome [Unknown]
